FAERS Safety Report 15312450 (Version 2)
Quarter: 2020Q2

REPORT INFORMATION
  Report Type: Spontaneous
  Country: US (occurrence: US)
  Receive Date: 20180823
  Receipt Date: 20200427
  Transmission Date: 20200713
  Serious: Yes (Other)
  Sender: FDA-Public Use
  Company Number: US-BRISTOL-MYERS SQUIBB COMPANY-BMS-2018-078322

PATIENT
  Age: 65 Year
  Sex: Female
  Weight: 77.1 kg

DRUGS (1)
  1. ELIQUIS [Suspect]
     Active Substance: APIXABAN
     Indication: FACTOR VIII DEFICIENCY
     Dosage: 2.5 MG, BID
     Route: 048
     Dates: start: 20180606, end: 20180802

REACTIONS (5)
  - Pharyngeal swelling [Unknown]
  - Urticaria [Unknown]
  - Peripheral swelling [Unknown]
  - Swelling face [Unknown]
  - Intentional product use issue [Unknown]

NARRATIVE: CASE EVENT DATE: 20180712
